FAERS Safety Report 20018191 (Version 1)
Quarter: 2021Q4

REPORT INFORMATION
  Report Type: Spontaneous
  Country: FR (occurrence: FR)
  Receive Date: 20211101
  Receipt Date: 20211101
  Transmission Date: 20220303
  Serious: Yes (Life-Threatening)
  Sender: FDA-Public Use
  Company Number: None

PATIENT
  Age: 45 Year
  Sex: Female

DRUGS (8)
  1. DEXAMETHASONE [Suspect]
     Active Substance: DEXAMETHASONE
     Indication: Anaesthesia
     Route: 065
     Dates: start: 20210128, end: 20210128
  2. ROCURONIUM BROMIDE [Suspect]
     Active Substance: ROCURONIUM BROMIDE
     Indication: Anaesthesia
     Route: 065
     Dates: start: 20210128, end: 20210128
  3. SUFENTA [Suspect]
     Active Substance: SUFENTANIL CITRATE
     Indication: Anaesthesia
     Route: 065
     Dates: start: 20210128, end: 20210128
  4. CEFAZOLIN SODIUM [Suspect]
     Active Substance: CEFAZOLIN SODIUM
     Indication: Antibiotic prophylaxis
     Route: 065
     Dates: start: 20210128, end: 20210128
  5. KETAMINE [Suspect]
     Active Substance: KETAMINE
     Indication: Anaesthesia
     Route: 065
     Dates: start: 20210128, end: 20210128
  6. PROPOFOL [Suspect]
     Active Substance: PROPOFOL
     Indication: Anaesthesia
     Route: 065
     Dates: start: 20210128, end: 20210128
  7. LIDOCAINE [Suspect]
     Active Substance: LIDOCAINE
     Indication: Anaesthesia
     Route: 065
     Dates: start: 20210128, end: 20210128
  8. CEFOXITIN [Suspect]
     Active Substance: CEFOXITIN SODIUM
     Indication: Antibiotic prophylaxis
     Route: 065
     Dates: start: 20210128, end: 20210128

REACTIONS (2)
  - Cardiac arrest [Recovered/Resolved]
  - Hypotension [Recovered/Resolved]

NARRATIVE: CASE EVENT DATE: 20210128
